FAERS Safety Report 5781031-6 (Version None)
Quarter: 2008Q2

REPORT INFORMATION
  Report Type: 
  Country: None (occurrence: None)
  Receive Date: 20080620
  Receipt Date: 20080617
  Transmission Date: 20081010
  Serious: Yes (Death, Hospitalization, Other)
  Sender: FDA-Public Use
  Company Number: MX-ABBOTT-08P-107-0455562-00

PATIENT
  Sex: Male
  Weight: 65 kg

DRUGS (1)
  1. KALETRA [Suspect]
     Indication: HIV INFECTION
     Dosage: 400/100MG TWICE DAILY
     Dates: start: 20060214

REACTIONS (6)
  - MALAISE [None]
  - MULTI-ORGAN FAILURE [None]
  - PNEUMONIA STREPTOCOCCAL [None]
  - PYREXIA [None]
  - RESPIRATORY FAILURE [None]
  - WEIGHT DECREASED [None]
